FAERS Safety Report 9970136 (Version 1)
Quarter: 2014Q1

REPORT INFORMATION
  Report Type: Spontaneous
  Country: GB (occurrence: GB)
  Receive Date: 20140306
  Receipt Date: 20140306
  Transmission Date: 20141002
  Serious: Yes (Other)
  Sender: FDA-Public Use
  Company Number: PHFR2014GB001783

PATIENT
  Sex: Female

DRUGS (4)
  1. AFINITOR [Suspect]
     Indication: BREAST CANCER
     Dosage: 10 MG, DAILY
     Dates: start: 201207, end: 201312
  2. AROMASIN [Suspect]
     Indication: BREAST CANCER
     Dosage: UNK
     Dates: start: 201207, end: 201312
  3. LETROZOLE [Concomitant]
  4. MELATONIN [Concomitant]

REACTIONS (41)
  - Pericardial effusion [Unknown]
  - Synovial cyst [Unknown]
  - Lymphadenopathy [Unknown]
  - Tooth discolouration [Unknown]
  - Back pain [Unknown]
  - Liver disorder [Unknown]
  - Nail disorder [Unknown]
  - Neuropathy peripheral [Unknown]
  - Onychoclasis [Unknown]
  - Chills [Unknown]
  - Skin disorder [Unknown]
  - Photosensitivity reaction [Unknown]
  - Aphagia [Unknown]
  - Influenza like illness [Unknown]
  - Nodule [Unknown]
  - Wheezing [Unknown]
  - Alopecia [Unknown]
  - Malignant neoplasm progression [Unknown]
  - Epistaxis [Unknown]
  - Insomnia [Unknown]
  - Mouth ulceration [Unknown]
  - Oral pain [Recovered/Resolved]
  - Glossodynia [Unknown]
  - Decreased appetite [Recovering/Resolving]
  - Nausea [Unknown]
  - Metastases to skin [Unknown]
  - Vomiting [Unknown]
  - Arthralgia [Unknown]
  - Pruritus [Unknown]
  - Diarrhoea [Unknown]
  - Anaemia [Unknown]
  - Headache [Unknown]
  - Fatigue [Unknown]
  - Dyspnoea [Unknown]
  - Nail bed infection [Unknown]
  - Fungal infection [Unknown]
  - Weight decreased [Unknown]
  - Abdominal discomfort [Unknown]
  - Malaise [Unknown]
  - Dysgeusia [Unknown]
  - Drug ineffective [Unknown]
